FAERS Safety Report 7734223-0 (Version None)
Quarter: 2011Q3

REPORT INFORMATION
  Report Type: 
  Country: None (occurrence: None)
  Receive Date: 20110906
  Receipt Date: 20110906
  Transmission Date: 20111222
  Serious: No
  Sender: FDA-Public Use
  Company Number: None

PATIENT
  Age: 43 Year
  Sex: Female

DRUGS (2)
  1. LIOTHYRONINE SODIUM [Suspect]
     Indication: HYPOTHYROIDISM
     Dosage: 5MCG QD ORAL
     Route: 048
     Dates: start: 20090701, end: 20090801
  2. LIOTHYRONINE SODIUM [Suspect]
     Indication: THYROID CANCER
     Dosage: 5MCG QD ORAL
     Route: 048
     Dates: start: 20090701, end: 20090801

REACTIONS (1)
  - DYSPEPSIA [None]
